FAERS Safety Report 21604816 (Version 3)
Quarter: 2022Q4

REPORT INFORMATION
  Report Type: Spontaneous
  Country: US (occurrence: US)
  Receive Date: 20221116
  Receipt Date: 20221222
  Transmission Date: 20230113
  Serious: Yes (Life-Threatening, Other)
  Sender: FDA-Public Use
  Company Number: US-AMERICAN REGENT INC-2022003296

PATIENT
  Age: 31 Year
  Sex: Female

DRUGS (9)
  1. VENOFER [Suspect]
     Active Substance: IRON SUCROSE
     Indication: Iron deficiency anaemia
     Dosage: 300 MILLIGRAM IN 250 ML NORMAL SALINE
     Route: 042
     Dates: start: 20221109, end: 20221109
  2. VENOFER [Suspect]
     Active Substance: IRON SUCROSE
     Dosage: UNK
  3. VENOFER [Suspect]
     Active Substance: IRON SUCROSE
     Dosage: UNK
  4. EPINEPHRINE [Suspect]
     Active Substance: EPINEPHRINE
     Indication: Erythema
     Dosage: 0.3 MILLIGRAM
     Route: 030
     Dates: start: 20221109, end: 20221109
  5. EPINEPHRINE [Suspect]
     Active Substance: EPINEPHRINE
     Indication: Urticaria
  6. DIPHENHYDRAMINE [Suspect]
     Active Substance: DIPHENHYDRAMINE
     Indication: Erythema
     Dosage: 50 MILLIGRAM
     Dates: start: 20221109, end: 20221109
  7. DIPHENHYDRAMINE [Suspect]
     Active Substance: DIPHENHYDRAMINE
     Indication: Urticaria
  8. HYDROCORTISONE [Suspect]
     Active Substance: HYDROCORTISONE
     Indication: Erythema
     Dosage: 100 MILLIGRAM
     Dates: start: 20221109, end: 20221109
  9. HYDROCORTISONE [Suspect]
     Active Substance: HYDROCORTISONE
     Indication: Urticaria

REACTIONS (8)
  - Burning sensation [Recovered/Resolved]
  - Erythema [Recovered/Resolved]
  - Urticaria [Recovered/Resolved]
  - Back pain [Recovered/Resolved]
  - Depressed level of consciousness [Recovered/Resolved]
  - Hypersensitivity [Recovered/Resolved]
  - Injection site pain [Recovered/Resolved]
  - Product quality issue [Unknown]

NARRATIVE: CASE EVENT DATE: 20221109
